FAERS Safety Report 19977114 (Version 3)
Quarter: 2022Q1

REPORT INFORMATION
  Report Type: Report from Study
  Country: US (occurrence: US)
  Receive Date: 20211021
  Receipt Date: 20220213
  Transmission Date: 20220424
  Serious: Yes (Other)
  Sender: FDA-Public Use
  Company Number: US-TEVA-2021-US-1967721

PATIENT
  Age: 26 Year
  Sex: Female

DRUGS (3)
  1. CLARAVIS [Suspect]
     Active Substance: ISOTRETINOIN
     Dosage: 80 MILLIGRAM DAILY;
     Route: 065
     Dates: start: 20210702, end: 20211031
  2. Yaz OCP [Concomitant]
     Route: 065
     Dates: start: 20210526
  3. MIFEPRISTONE [Concomitant]
     Active Substance: MIFEPRISTONE
     Dates: start: 20211015, end: 20211015

REACTIONS (1)
  - Unintended pregnancy [Unknown]

NARRATIVE: CASE EVENT DATE: 20210910
